FAERS Safety Report 25245256 (Version 1)
Quarter: 2025Q2

REPORT INFORMATION
  Report Type: Spontaneous
  Country: FR (occurrence: FR)
  Receive Date: 20250428
  Receipt Date: 20250428
  Transmission Date: 20250716
  Serious: Yes (Other)
  Sender: MYLAN
  Company Number: None

PATIENT
  Age: 57 Year
  Sex: Female

DRUGS (20)
  1. TRAMADOL [Suspect]
     Active Substance: TRAMADOL
     Indication: Product used for unknown indication
  2. TRAMADOL [Suspect]
     Active Substance: TRAMADOL
     Route: 048
  3. TRAMADOL [Suspect]
     Active Substance: TRAMADOL
     Route: 048
  4. TRAMADOL [Suspect]
     Active Substance: TRAMADOL
  5. PAROXETINE [Suspect]
     Active Substance: PAROXETINE
     Indication: Product used for unknown indication
  6. PAROXETINE [Suspect]
     Active Substance: PAROXETINE
     Route: 065
  7. PAROXETINE [Suspect]
     Active Substance: PAROXETINE
     Route: 065
  8. PAROXETINE [Suspect]
     Active Substance: PAROXETINE
  9. ZOPICLONE [Suspect]
     Active Substance: ZOPICLONE
     Indication: Product used for unknown indication
  10. ZOPICLONE [Suspect]
     Active Substance: ZOPICLONE
     Route: 065
  11. ZOPICLONE [Suspect]
     Active Substance: ZOPICLONE
     Route: 065
  12. ZOPICLONE [Suspect]
     Active Substance: ZOPICLONE
  13. NEFOPAM [Suspect]
     Active Substance: NEFOPAM
     Indication: Product used for unknown indication
  14. NEFOPAM [Suspect]
     Active Substance: NEFOPAM
     Route: 065
  15. NEFOPAM [Suspect]
     Active Substance: NEFOPAM
     Route: 065
  16. NEFOPAM [Suspect]
     Active Substance: NEFOPAM
  17. OXAZEPAM [Suspect]
     Active Substance: OXAZEPAM
     Indication: Product used for unknown indication
  18. OXAZEPAM [Suspect]
     Active Substance: OXAZEPAM
     Route: 048
  19. OXAZEPAM [Suspect]
     Active Substance: OXAZEPAM
     Route: 048
  20. OXAZEPAM [Suspect]
     Active Substance: OXAZEPAM

REACTIONS (2)
  - Drug abuse [Not Recovered/Not Resolved]
  - Illicit prescription attainment [Not Recovered/Not Resolved]
